FAERS Safety Report 12958163 (Version 1)
Quarter: 2016Q4

REPORT INFORMATION
  Report Type: Spontaneous
  Country: US (occurrence: US)
  Receive Date: 20161120
  Receipt Date: 20161120
  Transmission Date: 20170207
  Serious: Yes (Other)
  Sender: FDA-Public Use
  Company Number: US-B.I. PHARMACEUTICALS,INC./RIDGEFIELD-2016-BI-076032

PATIENT

DRUGS (2)
  1. MOBIC [Suspect]
     Active Substance: MELOXICAM
     Indication: PRODUCT USED FOR UNKNOWN INDICATION
     Route: 065
  2. VIGRA [Concomitant]
     Indication: PROSTATE CANCER
     Dosage: 1 TABLET AS NEEDED (AS  DIRECTED)
     Route: 048

REACTIONS (1)
  - Anaphylactic reaction [Unknown]
